FAERS Safety Report 5134977-6 (Version None)
Quarter: 2006Q4

REPORT INFORMATION
  Report Type: 
  Country: None (occurrence: None)
  Receive Date: 20061025
  Receipt Date: 20060817
  Transmission Date: 20070319
  Serious: Yes (Congenital Anomaly)
  Sender: FDA-Public Use
  Company Number: GB-BOEHRINGER INGELHEIM GMBH, GERMANY-2006-UK-03597UK

PATIENT

DRUGS (5)
  1. VIRAMUNE [Suspect]
     Dosage: 400MG/DAY
     Route: 015
     Dates: end: 20051225
  2. EPZICOM [Suspect]
     Dosage: 1/DAY
     Route: 015
     Dates: end: 20051225
  3. COMBIVIR [Suspect]
     Dosage: 2/DAY
     Route: 015
     Dates: start: 20060411
  4. RITONAVIR [Suspect]
     Dosage: 200MG/DAY
     Route: 015
     Dates: start: 20060411
  5. INVIRASE [Suspect]
     Route: 048
     Dates: start: 20060411

REACTIONS (2)
  - DRUG EXPOSURE DURING PREGNANCY [None]
  - TRISOMY 21 [None]
